FAERS Safety Report 8063514-1 (Version None)
Quarter: 2012Q1

REPORT INFORMATION
  Report Type: 
  Country: None (occurrence: None)
  Receive Date: 20120123
  Receipt Date: 20120109
  Transmission Date: 20120608
  Serious: Yes (Hospitalization)
  Sender: FDA-Public Use
  Company Number: CO-ELI_LILLY_AND_COMPANY-CO201201003335

PATIENT
  Age: 52 Year
  Sex: Female

DRUGS (3)
  1. BYETTA [Suspect]
     Indication: TYPE 2 DIABETES MELLITUS
     Dosage: 5 UG, UNK
     Dates: start: 20111122, end: 20120102
  2. BYETTA [Suspect]
     Dosage: 10 UG, QD
     Route: 058
     Dates: start: 20120102, end: 20120106
  3. GLIMEPIRIDE W/METFORMIN [Concomitant]

REACTIONS (6)
  - HYPERHIDROSIS [None]
  - BLOOD GLUCOSE INCREASED [None]
  - LOSS OF CONSCIOUSNESS [None]
  - TREMOR [None]
  - ASTHENIA [None]
  - HYPOGLYCAEMIA [None]
